FAERS Safety Report 8261541-2 (Version None)
Quarter: 2012Q2

REPORT INFORMATION
  Report Type: 
  Country: None (occurrence: None)
  Receive Date: 20120405
  Receipt Date: 20120327
  Transmission Date: 20120825
  Serious: Yes (Hospitalization, Other)
  Sender: FDA-Public Use
  Company Number: US-ELI_LILLY_AND_COMPANY-US201203001208

PATIENT
  Sex: Female

DRUGS (12)
  1. METOPROLOL TARTRATE [Concomitant]
     Dosage: 100 MG, UNKNOWN
  2. PREDNISONE TAB [Concomitant]
     Dosage: UNK, QD
  3. FORTEO [Suspect]
     Indication: OSTEOPOROSIS
     Dosage: 20 UG, QD
     Route: 065
  4. AMLODIPINE [Concomitant]
     Dosage: 5 MG, UNKNOWN
  5. DILTIAZEM HCL [Concomitant]
     Dosage: 240 MG, UNKNOWN
  6. PLAVIX [Concomitant]
     Dosage: 75 MG, UNKNOWN
  7. FISH OIL [Concomitant]
     Dosage: 1000 MG, UNKNOWN
  8. AMLODIPINE [Concomitant]
     Dosage: 10 MG, UNKNOWN
  9. VITAMIN D [Concomitant]
     Dosage: 1000 IU, UNKNOWN
  10. FORTEO [Suspect]
     Dosage: 20 UG, QD
  11. PROTONIX [Concomitant]
     Dosage: 40 MG, UNKNOWN
  12. PANTOPRAZOLE [Concomitant]
     Dosage: 40 MG, UNKNOWN

REACTIONS (1)
  - MYOCARDIAL INFARCTION [None]
